FAERS Safety Report 18614023 (Version 1)
Quarter: 2020Q4

REPORT INFORMATION
  Report Type: Spontaneous
  Country: US (occurrence: US)
  Receive Date: 20201214
  Receipt Date: 20201214
  Transmission Date: 20210114
  Serious: No
  Sender: FDA-Public Use
  Company Number: US-NOVOPROD-736436

PATIENT
  Sex: Male

DRUGS (1)
  1. LEVEMIR [Suspect]
     Active Substance: INSULIN DETEMIR
     Indication: TYPE 2 DIABETES MELLITUS
     Dosage: 35 IU, BID
     Route: 058
     Dates: start: 2010

REACTIONS (2)
  - Tinnitus [Not Recovered/Not Resolved]
  - Hypoacusis [Not Recovered/Not Resolved]
